FAERS Safety Report 5207602-3 (Version None)
Quarter: 2007Q1

REPORT INFORMATION
  Report Type: 
  Country: None (occurrence: None)
  Receive Date: 20070112
  Receipt Date: 20070106
  Transmission Date: 20070707
  Serious: Yes (Other)
  Sender: FDA-Public Use
  Company Number: US-PFIZER INC-2006141015

PATIENT
  Sex: Female
  Weight: 46.3 kg

DRUGS (4)
  1. ZOLOFT [Suspect]
     Indication: DEPRESSION
     Route: 048
     Dates: start: 20060622, end: 20060920
  2. ZOLOFT [Suspect]
     Indication: MAJOR DEPRESSION
  3. LITHIUM CARBONATE [Concomitant]
  4. CLONAZEPAM [Concomitant]
     Route: 048

REACTIONS (16)
  - ABNORMAL BEHAVIOUR [None]
  - AGGRESSION [None]
  - AGITATION [None]
  - AKATHISIA [None]
  - AMNESIA [None]
  - ANGER [None]
  - ANXIETY [None]
  - CONTUSION [None]
  - DISINHIBITION [None]
  - DYSPHORIA [None]
  - HOMICIDAL IDEATION [None]
  - INSOMNIA [None]
  - MENTAL DISORDER [None]
  - PERSONALITY CHANGE [None]
  - PHLEBITIS [None]
  - SELF INJURIOUS BEHAVIOUR [None]
